FAERS Safety Report 5125658-3 (Version None)
Quarter: 2006Q4

REPORT INFORMATION
  Report Type: 
  Country: None (occurrence: None)
  Receive Date: 20061012
  Receipt Date: 20060928
  Transmission Date: 20070319
  Serious: Yes (Hospitalization)
  Sender: FDA-Public Use
  Company Number: PHBS2006JP15234

PATIENT
  Age: 74 Year
  Sex: Male

DRUGS (3)
  1. DIOVAN [Suspect]
     Indication: CARDIAC FAILURE
     Dosage: 80 MG/DAY
     Route: 048
     Dates: start: 20060701, end: 20060906
  2. AIDEITO [Suspect]
     Indication: HYPERURICAEMIA
     Dosage: 2 DF/DAY
     Route: 048
     Dates: start: 20060701, end: 20060906
  3. ASPIRIN [Suspect]
     Dosage: 100 MG/DAY
     Route: 048
     Dates: start: 20060701, end: 20060906

REACTIONS (3)
  - GENERALISED ERYTHEMA [None]
  - PYREXIA [None]
  - RENAL FAILURE [None]
